FAERS Safety Report 18570200 (Version 1)
Quarter: 2020Q4

REPORT INFORMATION
  Report Type: Spontaneous
  Country: CN (occurrence: CN)
  Receive Date: 20201202
  Receipt Date: 20201202
  Transmission Date: 20210114
  Serious: Yes (Hospitalization)
  Sender: FDA-Public Use
  Company Number: CN-EISAI MEDICAL RESEARCH-EC-2020-084350

PATIENT
  Age: 70 Year
  Sex: Male
  Weight: 85 kg

DRUGS (6)
  1. LENVIMA [Suspect]
     Active Substance: LENVATINIB
     Indication: GALLBLADDER CANCER
     Route: 048
     Dates: start: 20201020, end: 20201105
  2. SODIUM CHLORIDE. [Concomitant]
     Active Substance: SODIUM CHLORIDE
     Indication: VEHICLE SOLUTION USE
     Dosage: 100 ML, FREQUENCY UNKNOWN
     Route: 042
     Dates: start: 20201020, end: 20201020
  3. SODIUM CHLORIDE. [Concomitant]
     Active Substance: SODIUM CHLORIDE
     Dosage: 100 ML, FREQUENCY UNKNOWN
     Route: 042
     Dates: start: 20201112, end: 20201112
  4. LENVIMA [Suspect]
     Active Substance: LENVATINIB
     Route: 048
     Dates: start: 20201112, end: 20201122
  5. TORIPALIMAB. [Suspect]
     Active Substance: TORIPALIMAB
     Indication: GALLBLADDER CANCER
     Route: 042
     Dates: start: 20201020, end: 20201020
  6. TORIPALIMAB. [Suspect]
     Active Substance: TORIPALIMAB
     Route: 042
     Dates: start: 20201112, end: 20201112

REACTIONS (2)
  - Rash [Recovering/Resolving]
  - Pruritus [Recovering/Resolving]

NARRATIVE: CASE EVENT DATE: 20201023
